FAERS Safety Report 4491627-X (Version None)
Quarter: 2004Q4

REPORT INFORMATION
  Report Type: 
  Country: None (occurrence: None)
  Receive Date: 20041101
  Receipt Date: 20041018
  Transmission Date: 20050328
  Serious: Yes (Death)
  Sender: FDA-Public Use
  Company Number: 2004079485

PATIENT
  Age: 26 Year
  Sex: Female

DRUGS (6)
  1. VIRACEPT [Suspect]
     Indication: HIV INFECTION
     Dosage: 6 TABLETS (1 D)
     Dates: start: 19980603, end: 19980928
  2. STAVUDINE (STAVUDINE) [Suspect]
     Indication: HIV INFECTION
     Dosage: 60 MG (1 D)
     Dates: start: 19980603, end: 19980928
  3. DIDANOSINE [Suspect]
     Indication: HIV INFECTION
     Dosage: 2 TABLETS (1 D)
     Dates: start: 19980603, end: 19980928
  4. NEVIRAPINE (NEVIRAPINE) [Suspect]
     Indication: HIV INFECTION
     Dosage: 1 TABLET (1 D)
     Dates: start: 19980928
  5. ZIDOVUDINE [Suspect]
     Indication: HIV INFECTION
     Dosage: 500 MG (1 D)
     Dates: start: 19940401, end: 19980603
  6. LAMIVUDINE (LAMIVUDINE) [Suspect]
     Indication: HIV INFECTION
     Dates: start: 19971223, end: 19980603

REACTIONS (9)
  - BLOOD ALBUMIN ABNORMAL [None]
  - DRUG EXPOSURE DURING PREGNANCY [None]
  - HAEMOGLOBIN DECREASED [None]
  - INTRA-UTERINE DEATH [None]
  - METRORRHAGIA [None]
  - POLLAKIURIA [None]
  - PROTEIN URINE PRESENT [None]
  - UTERINE CONTRACTIONS DURING PREGNANCY [None]
  - VIRAL LOAD INCREASED [None]
